FAERS Safety Report 26047764 (Version 1)
Quarter: 2025Q4

REPORT INFORMATION
  Report Type: Spontaneous
  Country: US (occurrence: US)
  Receive Date: 20251114
  Receipt Date: 20251114
  Transmission Date: 20260117
  Serious: No
  Sender: PFIZER
  Company Number: US-PFIZER INC-202500221990

PATIENT
  Age: 73 Year
  Sex: Female
  Weight: 77.11 kg

DRUGS (2)
  1. ZITHROMAX [Suspect]
     Active Substance: AZITHROMYCIN DIHYDRATE
     Indication: Illness
     Dosage: UNK (THINKS SHE TOOK 6 TABLETS)
  2. LITHIUM [Concomitant]
     Active Substance: LITHIUM
     Indication: Psychotic disorder
     Dosage: UNK

REACTIONS (4)
  - Tinnitus [Unknown]
  - Urinary tract infection [Unknown]
  - Influenza [Unknown]
  - Drug ineffective [Unknown]
